FAERS Safety Report 15668056 (Version 1)
Quarter: 2018Q4

REPORT INFORMATION
  Report Type: Spontaneous
  Country: US (occurrence: US)
  Receive Date: 20181128
  Receipt Date: 20181128
  Transmission Date: 20190205
  Serious: No
  Sender: FDA-Public Use
  Company Number: US-ASTRAZENECA-2018SF45669

PATIENT
  Sex: Male
  Weight: 72.6 kg

DRUGS (2)
  1. CRESTOR [Suspect]
     Active Substance: ROSUVASTATIN CALCIUM
     Indication: LOW DENSITY LIPOPROTEIN INCREASED
     Route: 048
     Dates: start: 2009
  2. CRESTOR [Suspect]
     Active Substance: ROSUVASTATIN CALCIUM
     Indication: LOW DENSITY LIPOPROTEIN INCREASED
     Dosage: ROSUVASTATIN CALCIUM
     Route: 048
     Dates: start: 20181009

REACTIONS (4)
  - Gait disturbance [Unknown]
  - Low density lipoprotein increased [Unknown]
  - Muscle spasms [Unknown]
  - Intentional product misuse [Unknown]
